FAERS Safety Report 17806078 (Version 1)
Quarter: 2020Q2

REPORT INFORMATION
  Report Type: Spontaneous
  Country: ES (occurrence: ES)
  Receive Date: 20200520
  Receipt Date: 20200520
  Transmission Date: 20200714
  Serious: Yes (Hospitalization)
  Sender: FDA-Public Use
  Company Number: ES-ACCORD-182452

PATIENT
  Age: 48 Year
  Sex: Female

DRUGS (5)
  1. AZITHROMYCIN ANHYDROUS. [Suspect]
     Active Substance: AZITHROMYCIN ANHYDROUS
     Indication: CORONAVIRUS INFECTION
     Dosage: 500 MG DAY
     Route: 042
     Dates: start: 20200403, end: 20200409
  2. HYDROXYCHLOROQUINE [Suspect]
     Active Substance: HYDROXYCHLOROQUINE
     Indication: PNEUMONIA
     Dosage: 400 MG DAY
     Route: 048
     Dates: start: 20200403, end: 20200409
  3. TOCILIZUMAB. [Suspect]
     Active Substance: TOCILIZUMAB
     Indication: CORONAVIRUS INFECTION
     Dosage: 600 MG
     Route: 042
     Dates: start: 20200403, end: 20200403
  4. ENOXAPARIN [Suspect]
     Active Substance: ENOXAPARIN
     Indication: EMBOLISM
     Dosage: 60 MG CADA 12 HORAS
     Route: 058
     Dates: start: 202004, end: 20200420
  5. DEXAMETHASONE. [Suspect]
     Active Substance: DEXAMETHASONE
     Indication: CORONAVIRUS INFECTION
     Dosage: 20 MG DAILY FOR 6 DAYS FOLLOWED BY 10 MG DAILY X 5 DAYS
     Route: 042
     Dates: start: 202004, end: 20200415

REACTIONS (3)
  - Blood loss anaemia [Not Recovered/Not Resolved]
  - Hepatitis acute [Unknown]
  - Gastrointestinal haemorrhage [Recovering/Resolving]

NARRATIVE: CASE EVENT DATE: 20200404
